FAERS Safety Report 6004746-3 (Version None)
Quarter: 2008Q4

REPORT INFORMATION
  Report Type: 
  Country: None (occurrence: None)
  Receive Date: 20081216
  Receipt Date: 20081212
  Transmission Date: 20090506
  Serious: Yes (Hospitalization)
  Sender: FDA-Public Use
  Company Number: JP-B.I. PHARMACEUTICALS,INC./RIDGEFIELD-2008-BP-03488NB

PATIENT
  Sex: Female
  Weight: 37.8 kg

DRUGS (10)
  1. BI-SIFROL TABLETS [Suspect]
     Indication: PARKINSON'S DISEASE
     Dosage: 1.5MG
     Route: 048
     Dates: start: 20051226
  2. FP [Suspect]
     Indication: PARKINSON'S DISEASE
     Dosage: 7.5MG
     Route: 048
     Dates: start: 20070127
  3. LEXOTAN [Concomitant]
     Indication: DEPRESSION
     Dosage: 3MG
     Route: 048
     Dates: start: 20031126
  4. DOMPERIDONE [Concomitant]
     Indication: PARKINSON'S DISEASE
     Dosage: 3MG
     Route: 048
     Dates: start: 20031126
  5. ASPIRIN [Concomitant]
     Indication: CEREBRAL INFARCTION
     Dosage: 100MG
     Route: 048
     Dates: start: 20031215
  6. BROTIZOLAM [Concomitant]
     Indication: INSOMNIA
     Dosage: .25MG
     Route: 048
     Dates: start: 20031126
  7. ARTANE [Concomitant]
     Indication: PARKINSON'S DISEASE
     Dosage: 2MG
     Route: 048
     Dates: start: 20031215
  8. CARBIDOPA + LEVODOPA [Concomitant]
     Indication: PARKINSON'S DISEASE
     Dosage: 350MG
     Route: 048
     Dates: start: 20031126
  9. DIOVAN [Concomitant]
     Indication: HYPERTENSION
     Dosage: 80MG
     Route: 048
     Dates: start: 20040416
  10. SYMMETREL [Concomitant]
     Indication: PARKINSON'S DISEASE
     Dosage: 200MG
     Route: 048
     Dates: start: 20031126

REACTIONS (4)
  - ATRIAL SEPTAL DEFECT [None]
  - CARDIAC FAILURE [None]
  - CONGESTIVE CARDIOMYOPATHY [None]
  - OEDEMA PERIPHERAL [None]
